FAERS Safety Report 7391934 (Version 4)
Quarter: 2012Q4

REPORT INFORMATION
  Report Type: 
  Country: US (occurrence: US)
  Receive Date: 20100518
  Receipt Date: 20121108
  Transmission Date: 20130627
  Serious: Yes (Hospitalization, Other)
  Sender: FDA-Public Use
  Company Number: PHEH2010US03452

PATIENT
  Sex: Female

DRUGS (1)
  1. TEGRETOL [Suspect]
     Indication: BIPOLAR DISORDER
     Dates: start: 20080417, end: 20080501

REACTIONS (68)
  - Toxic epidermal necrolysis [Unknown]
  - Stevens-Johnson syndrome [Unknown]
  - Injury [Unknown]
  - Deformity [Unknown]
  - Pain [Unknown]
  - Mental disorder [Unknown]
  - Disability [Unknown]
  - Decreased interest [Unknown]
  - Anxiety [Unknown]
  - Rash [Unknown]
  - Pruritus [Unknown]
  - Skin discolouration [Unknown]
  - Skin exfoliation [Unknown]
  - Alopecia [Unknown]
  - Nail disorder [Unknown]
  - Pigmentation disorder [Unknown]
  - Urticaria [Unknown]
  - Swelling [Unknown]
  - Mucous membrane disorder [Unknown]
  - Scar [Unknown]
  - Blindness [Unknown]
  - Internal injury [Unknown]
  - Hypersensitivity [Unknown]
  - Pyrexia [Unknown]
  - Chills [Unknown]
  - Pharyngeal oedema [Unknown]
  - Skin burning sensation [Unknown]
  - Skin lesion [Unknown]
  - Rash macular [Unknown]
  - Skin disorder [Unknown]
  - Hepatomegaly [Unknown]
  - Nasal congestion [Unknown]
  - Oropharyngeal pain [Unknown]
  - Aphasia [Unknown]
  - Pain of skin [Unknown]
  - Chest pain [Unknown]
  - Respiratory tract infection [Unknown]
  - Portal hypertension [Unknown]
  - Vertigo [Unknown]
  - Tinnitus [Unknown]
  - Nausea [Unknown]
  - Vomiting [Unknown]
  - Haematochezia [Unknown]
  - Swelling face [Unknown]
  - Limb crushing injury [Unknown]
  - Foot fracture [Unknown]
  - Cirrhosis alcoholic [Unknown]
  - Ovarian cyst [Unknown]
  - Haematemesis [Unknown]
  - Dyspnoea [Unknown]
  - Melaena [Unknown]
  - Splenomegaly [Unknown]
  - Hepatic failure [Unknown]
  - Varices oesophageal [Unknown]
  - Joint swelling [Unknown]
  - Gastrointestinal haemorrhage [Unknown]
  - Diarrhoea [Unknown]
  - Urinary tract infection [Unknown]
  - Arthralgia [Unknown]
  - Myalgia [Unknown]
  - Spondylolysis [Unknown]
  - Onychomycosis [Unknown]
  - Tinea pedis [Unknown]
  - Drug hypersensitivity [Unknown]
  - Depressed level of consciousness [Unknown]
  - Depression [Unknown]
  - Eye infection bacterial [Unknown]
  - Xerosis [Unknown]
